FAERS Safety Report 6641419-8 (Version None)
Quarter: 2010Q1

REPORT INFORMATION
  Report Type: 
  Country: None (occurrence: None)
  Receive Date: 20100317
  Receipt Date: 20100317
  Transmission Date: 20100710
  Serious: No
  Sender: FDA-Public Use
  Company Number: None

PATIENT
  Sex: Female
  Weight: 71.8 kg

DRUGS (2)
  1. LANSOPRAZOLE [Suspect]
     Indication: DYSPEPSIA
     Dosage: 30MG DAILY ORAL
     Route: 048
     Dates: start: 20100105
  2. LANSOPRAZOLE [Suspect]
     Indication: GASTRITIS
     Dosage: 30MG DAILY ORAL
     Route: 048
     Dates: start: 20100105

REACTIONS (4)
  - CONDITION AGGRAVATED [None]
  - DISCOMFORT [None]
  - DRUG INEFFECTIVE [None]
  - PRODUCT SUBSTITUTION ISSUE [None]
